FAERS Safety Report 22130999 (Version 1)
Quarter: 2023Q1

REPORT INFORMATION
  Report Type: Spontaneous
  Country: IQ (occurrence: IQ)
  Receive Date: 20230323
  Receipt Date: 20230323
  Transmission Date: 20230417
  Serious: Yes (Death, Other)
  Sender: FDA-Public Use
  Company Number: IQ-SA-SAC20230130000386

PATIENT
  Age: 1 Year
  Sex: Female
  Weight: 8 kg

DRUGS (1)
  1. MYOZYME [Suspect]
     Active Substance: ALGLUCOSIDASE ALFA
     Indication: Glycogen storage disease type II
     Dosage: 20 MG/KG
     Route: 042
     Dates: start: 202111, end: 20220909

REACTIONS (5)
  - Respiratory failure [Fatal]
  - Cardiomyopathy [Fatal]
  - Respiratory muscle weakness [Fatal]
  - Glycogen storage disease type II [Fatal]
  - Condition aggravated [Fatal]
